FAERS Safety Report 24883304 (Version 1)
Quarter: 2025Q1

REPORT INFORMATION
  Report Type: Spontaneous
  Country: TG (occurrence: TG)
  Receive Date: 20250124
  Receipt Date: 20250124
  Transmission Date: 20250408
  Serious: Yes (Other)
  Sender: RANBAXY
  Company Number: TG-SUN PHARMACEUTICAL INDUSTRIES LTD-2025RR-489667

PATIENT
  Age: 55 Year
  Sex: Male

DRUGS (3)
  1. OLANZAPINE [Suspect]
     Active Substance: OLANZAPINE
     Indication: Delirium
     Dosage: 20 MILLIGRAM, DAILY
     Route: 065
  2. HALOPERIDOL [Suspect]
     Active Substance: HALOPERIDOL
     Indication: Delirium
     Dosage: 50 MILLIGRAM, MONTHLY
     Route: 065
  3. TRIHEXYPHENIDYL [Suspect]
     Active Substance: TRIHEXYPHENIDYL
     Indication: Delirium
     Route: 065

REACTIONS (1)
  - Torticollis [Unknown]

NARRATIVE: CASE EVENT DATE: 20200713
